FAERS Safety Report 8591028-9 (Version None)
Quarter: 2012Q3

REPORT INFORMATION
  Report Type: 
  Country: None (occurrence: None)
  Receive Date: 20120813
  Receipt Date: 20120808
  Transmission Date: 20120928
  Serious: Yes (Hospitalization, Other)
  Sender: FDA-Public Use
  Company Number: US-B.I. PHARMACEUTICALS,INC./RIDGEFIELD-2012-BP-17880BP

PATIENT
  Sex: Female

DRUGS (4)
  1. AGGRENOX [Suspect]
     Indication: ANGINA PECTORIS
     Route: 048
     Dates: start: 20100101
  2. PLAVIX [Concomitant]
  3. AGGRENOX [Suspect]
     Indication: CEREBROVASCULAR ACCIDENT
  4. KEPPRA [Concomitant]

REACTIONS (10)
  - TRANSIENT ISCHAEMIC ATTACK [None]
  - RENAL CANCER [None]
  - SPEECH DISORDER [None]
  - URINE OUTPUT DECREASED [None]
  - OEDEMA PERIPHERAL [None]
  - ABDOMINAL PAIN [None]
  - CEREBROVASCULAR ACCIDENT [None]
  - CARDIAC FAILURE CONGESTIVE [None]
  - URINARY TRACT INFECTION [None]
  - PAIN IN EXTREMITY [None]
